FAERS Safety Report 10258305 (Version 1)
Quarter: 2014Q2

REPORT INFORMATION
  Report Type: Spontaneous
  Country: BR (occurrence: BR)
  Receive Date: 20140625
  Receipt Date: 20140625
  Transmission Date: 20141212
  Serious: Yes (Other)
  Sender: FDA-Public Use
  Company Number: BR-SA-2014SA083429

PATIENT
  Age: 62 Year
  Sex: Female

DRUGS (3)
  1. FEXOFENADINE HYDROCHLORIDE/PSEUDOEPHEDRINE HYDROCHLORIDE [Suspect]
     Indication: HYPERSENSITIVITY
     Route: 048
     Dates: start: 20130102, end: 20130104
  2. FEXOFENADINE HYDROCHLORIDE/PSEUDOEPHEDRINE HYDROCHLORIDE [Suspect]
     Indication: COUGH
     Route: 048
     Dates: start: 20130102, end: 20130104
  3. FEXOFENADINE HYDROCHLORIDE/PSEUDOEPHEDRINE HYDROCHLORIDE [Suspect]
     Indication: THROAT IRRITATION
     Route: 048
     Dates: start: 20130102, end: 20130104

REACTIONS (2)
  - Asphyxia [Unknown]
  - Malaise [Unknown]
